FAERS Safety Report 8585701-6 (Version None)
Quarter: 2012Q2

REPORT INFORMATION
  Report Type: 
  Country: None (occurrence: None)
  Receive Date: 20120423
  Receipt Date: 20100224
  Transmission Date: 20120825
  Serious: Yes (Hospitalization)
  Sender: FDA-Public Use
  Company Number: PHEH2009US18857

PATIENT
  Age: 60 Year
  Sex: Male

DRUGS (2)
  1. CYCLOSPORINE [Suspect]
     Dates: start: 20090415, end: 20090526
  2. EXJADE [Suspect]
     Indication: IRON OVERLOAD
     Dosage: 1000 MG, BID, ORAL
     Route: 048
     Dates: start: 20090512, end: 20090526

REACTIONS (6)
  - DEHYDRATION [None]
  - VOMITING [None]
  - DRUG LEVEL INCREASED [None]
  - RENAL FAILURE ACUTE [None]
  - URINE OUTPUT DECREASED [None]
  - NAUSEA [None]
